FAERS Safety Report 15539747 (Version 13)
Quarter: 2022Q4

REPORT INFORMATION
  Report Type: Other
  Country: CA (occurrence: None)
  Receive Date: 20181023
  Receipt Date: 20221202
  Transmission Date: 20230112
  Serious: No
  Sender: FDA-Public Use
  Company Number: CA-ROCHE-2202888

PATIENT
  Age: 28 Year
  Sex: Female

DRUGS (2)
  1. OCREVUS [Suspect]
     Active Substance: OCRELIZUMAB
     Indication: Relapsing-remitting multiple sclerosis
     Dosage: 300 MG DAY 0 AND 14 THEN 600 MG ONCE IN 6 MONTH
     Route: 042
     Dates: start: 20181012
  2. IBUPROFEN [Concomitant]
     Active Substance: IBUPROFEN
     Indication: Headache
     Dosage: NEEDED(VARIES BETWEEN TWICE A WEEK TO ONCE MONTH)

REACTIONS (5)
  - Infusion related reaction [Unknown]
  - Influenza [Unknown]
  - Ear discomfort [Unknown]
  - Illness [Recovering/Resolving]
  - Cough [Unknown]

NARRATIVE: CASE EVENT DATE: 20181012
